FAERS Safety Report 9143599 (Version 2)
Quarter: 2013Q3

REPORT INFORMATION
  Report Type: Report from Study
  Country: US (occurrence: US)
  Receive Date: 20130306
  Receipt Date: 20130802
  Transmission Date: 20140515
  Serious: Yes (Death, Hospitalization)
  Sender: FDA-Public Use
  Company Number: US-ROCHE-1198049

PATIENT
  Sex: Female

DRUGS (1)
  1. VALCYTE [Suspect]
     Indication: LUNG TRANSPLANT
     Dosage: ORAL SUSPENSION 50 MG/ML 9 ML PEJ TUBE EVERY 12 HOURS
     Route: 048

REACTIONS (2)
  - Death [Fatal]
  - Rehabilitation therapy [Unknown]
